FAERS Safety Report 11247998 (Version 1)
Quarter: 2015Q3

REPORT INFORMATION
  Report Type: Spontaneous
  Country: FR (occurrence: None)
  Receive Date: 20150706
  Receipt Date: 20150706
  Transmission Date: 20151125
  Serious: Yes (Hospitalization)
  Sender: FDA-Public Use
  Company Number: CO-UX-FR-2015-010

PATIENT
  Age: 65 Year
  Sex: Male

DRUGS (7)
  1. TERBINAFINE. [Suspect]
     Active Substance: TERBINAFINE
     Indication: FUNGAL INFECTION
     Route: 048
     Dates: start: 201303, end: 20140111
  2. IBUPROFEN (IBUPROFEN) [Concomitant]
     Active Substance: IBUPROFEN
  3. CODEINE (CODEINE) [Concomitant]
     Active Substance: CODEINE
  4. FINASTERIDE (FINASTERIDE) [Concomitant]
     Active Substance: FINASTERIDE
  5. HELICIDINE (HELICIDINE) [Concomitant]
  6. TAHOR [Suspect]
     Active Substance: ATORVASTATIN CALCIUM
     Indication: DYSLIPIDAEMIA
     Route: 048
     Dates: end: 20140111
  7. XATRAL [Suspect]
     Active Substance: ALFUZOSIN
     Indication: BENIGN PROSTATIC HYPERPLASIA
     Route: 048
     Dates: end: 20140111

REACTIONS (5)
  - Inflammation [None]
  - Escherichia bacteraemia [None]
  - Hyperglycaemia [None]
  - Pancreatitis acute [None]
  - Pancreatic necrosis [None]

NARRATIVE: CASE EVENT DATE: 20140111
